FAERS Safety Report 6973895-5 (Version None)
Quarter: 2010Q3

REPORT INFORMATION
  Report Type: 
  Country: None (occurrence: None)
  Receive Date: 20100909
  Receipt Date: 20100830
  Transmission Date: 20110219
  Serious: Yes (Hospitalization, Disabling)
  Sender: FDA-Public Use
  Company Number: DE-ABBOTT-10P-062-0666813-00

PATIENT
  Age: 76 Year
  Sex: Male
  Weight: 82 kg

DRUGS (17)
  1. ZEMPLAR [Suspect]
     Indication: HYPERPARATHYROIDISM SECONDARY
     Route: 048
     Dates: start: 20090807
  2. PHOSEX [Concomitant]
     Indication: PRODUCT USED FOR UNKNOWN INDICATION
  3. PHOSEX [Concomitant]
  4. ARANESP [Concomitant]
     Indication: PRODUCT USED FOR UNKNOWN INDICATION
  5. DIOVAN [Concomitant]
     Indication: PRODUCT USED FOR UNKNOWN INDICATION
  6. PATZOL [Concomitant]
     Indication: PRODUCT USED FOR UNKNOWN INDICATION
  7. MARCUMAR [Concomitant]
     Indication: PRODUCT USED FOR UNKNOWN INDICATION
     Dosage: ACCORDING TO QUICK
  8. CARBIMAZOL [Concomitant]
     Indication: PRODUCT USED FOR UNKNOWN INDICATION
  9. KALINOR-RETARD P [Concomitant]
     Indication: PRODUCT USED FOR UNKNOWN INDICATION
  10. AQUEX [Concomitant]
     Indication: PRODUCT USED FOR UNKNOWN INDICATION
  11. SYMBICORT [Concomitant]
     Indication: PRODUCT USED FOR UNKNOWN INDICATION
     Dosage: 160/4.5 MCG/DOSE
     Route: 055
  12. FUROSEMID [Concomitant]
     Indication: PRODUCT USED FOR UNKNOWN INDICATION
  13. ASPIRIN [Concomitant]
     Indication: PRODUCT USED FOR UNKNOWN INDICATION
  14. TILIDIN [Concomitant]
     Indication: PRODUCT USED FOR UNKNOWN INDICATION
     Dosage: 50/40 RET IF REQUIRED
  15. VERAPAMIL HCL [Concomitant]
     Indication: PRODUCT USED FOR UNKNOWN INDICATION
  16. NITROLINGUAL PUMPSPRAY [Concomitant]
     Indication: PRODUCT USED FOR UNKNOWN INDICATION
  17. PHOSEX [Concomitant]

REACTIONS (10)
  - CARDIOVASCULAR DISORDER [None]
  - CATHETERISATION CARDIAC [None]
  - CORONARY ARTERIAL STENT INSERTION [None]
  - DIARRHOEA [None]
  - DYSPNOEA [None]
  - EXTREMITY NECROSIS [None]
  - ISCHAEMIA [None]
  - MEDICAL DEVICE COMPLICATION [None]
  - PERITONITIS [None]
  - UMBILICAL HERNIA [None]
